FAERS Safety Report 20174348 (Version 1)
Quarter: 2021Q4

REPORT INFORMATION
  Report Type: Other
  Country: GB (occurrence: None)
  Receive Date: 20211213
  Receipt Date: 20211213
  Transmission Date: 20220303
  Serious: Yes (Hospitalization, Other)
  Sender: FDA-Public Use
  Company Number: GB-Saptalis Pharmaceuticals,LLC-000147

PATIENT
  Age: 45 Year
  Sex: Female

DRUGS (2)
  1. KENALOG [Suspect]
     Active Substance: TRIAMCINOLONE ACETONIDE
     Indication: Product used for unknown indication
     Route: 014
  2. LIDOCAINE [Concomitant]
     Active Substance: LIDOCAINE
     Indication: Local anaesthesia

REACTIONS (8)
  - Tachycardia [Recovered/Resolved]
  - Urticaria [Recovered/Resolved]
  - Angioedema [Recovered/Resolved]
  - Hyperhidrosis [Recovered/Resolved]
  - Hypotension [Recovered/Resolved]
  - Presyncope [Recovered/Resolved]
  - Allergic reaction to excipient [Recovered/Resolved]
  - Type I hypersensitivity [Recovered/Resolved]
